FAERS Safety Report 5544245-6 (Version None)
Quarter: 2007Q4

REPORT INFORMATION
  Report Type: 
  Country: None (occurrence: None)
  Receive Date: 20071210
  Receipt Date: 20061127
  Transmission Date: 20080405
  Serious: No
  Sender: FDA-Public Use
  Company Number: US-AMGEN-KDL201576

PATIENT
  Sex: Female

DRUGS (2)
  1. ENBREL [Suspect]
     Indication: PSORIATIC ARTHROPATHY
     Route: 058
     Dates: start: 20061017
  2. PLAQUENIL [Concomitant]
     Route: 048
     Dates: start: 20050101

REACTIONS (3)
  - HEADACHE [None]
  - NASOPHARYNGITIS [None]
  - PSORIATIC ARTHROPATHY [None]
